FAERS Safety Report 13486024 (Version 1)
Quarter: 2017Q2

REPORT INFORMATION
  Report Type: Spontaneous
  Country: US (occurrence: US)
  Receive Date: 20170426
  Receipt Date: 20170426
  Transmission Date: 20170830
  Serious: Yes (Hospitalization)
  Sender: FDA-Public Use
  Company Number: None

PATIENT
  Age: 67 Year
  Sex: Female
  Weight: 85.5 kg

DRUGS (7)
  1. LISINOPRIL. [Concomitant]
     Active Substance: LISINOPRIL
  2. TRAZODONE [Concomitant]
     Active Substance: TRAZODONE HYDROCHLORIDE
  3. AMANTADINE. [Concomitant]
     Active Substance: AMANTADINE HYDROCHLORIDE
  4. PAROXETINE. [Suspect]
     Active Substance: PAROXETINE
     Indication: ANXIETY
     Dosage: ?          QUANTITY:90 TABLET(S);?
     Route: 048
     Dates: start: 20150615, end: 20170322
  5. PAROXETINE. [Suspect]
     Active Substance: PAROXETINE
     Indication: ANGER
     Dosage: ?          QUANTITY:90 TABLET(S);?
     Route: 048
     Dates: start: 20150615, end: 20170322
  6. CALCIUM WITH VITAMIN D [Concomitant]
     Active Substance: CALCIUM\VITAMIN D
  7. BACLOFEN. [Concomitant]
     Active Substance: BACLOFEN

REACTIONS (7)
  - Fall [None]
  - Fatigue [None]
  - Tic [None]
  - Restless legs syndrome [None]
  - Gait disturbance [None]
  - Conversion disorder [None]
  - Amnesia [None]

NARRATIVE: CASE EVENT DATE: 20170123
